FAERS Safety Report 11429171 (Version 1)
Quarter: 2015Q3

REPORT INFORMATION
  Report Type: Spontaneous
  Country: US (occurrence: US)
  Receive Date: 20150828
  Receipt Date: 20150828
  Transmission Date: 20151125
  Serious: No
  Sender: FDA-Public Use
  Company Number: US-ROCHE-1148447

PATIENT
  Sex: Female

DRUGS (4)
  1. INCIVEK [Suspect]
     Active Substance: TELAPREVIR
     Indication: CHRONIC HEPATITIS C
     Route: 065
     Dates: start: 20120713, end: 20120928
  2. INCIVEK [Suspect]
     Active Substance: TELAPREVIR
     Route: 065
     Dates: end: 20121005
  3. RIBASPHERE [Suspect]
     Active Substance: RIBAVIRIN
     Indication: CHRONIC HEPATITIS C
     Dosage: DIVIDED DOSE
     Route: 048
     Dates: start: 20120713
  4. PEGASYS [Suspect]
     Active Substance: PEGINTERFERON ALFA-2A
     Indication: CHRONIC HEPATITIS C
     Route: 058
     Dates: start: 20120713

REACTIONS (9)
  - Erythema [Unknown]
  - Fungal infection [Unknown]
  - White blood cell count decreased [Unknown]
  - Fatigue [Unknown]
  - Migraine [Unknown]
  - Anaemia [Unknown]
  - Irritability [Unknown]
  - Decreased appetite [Unknown]
  - Binge eating [Unknown]
